FAERS Safety Report 20054128 (Version 1)
Quarter: 2021Q4

REPORT INFORMATION
  Report Type: Spontaneous
  Country: US (occurrence: None)
  Receive Date: 20211109
  Receipt Date: 20211109
  Transmission Date: 20220303
  Serious: Yes (Hospitalization)
  Sender: FDA-Public Use
  Company Number: None

PATIENT
  Age: 90 Year
  Sex: Female

DRUGS (13)
  1. ESBRIET [Suspect]
     Active Substance: PIRFENIDONE
     Indication: Idiopathic pulmonary fibrosis
     Dosage: FREQUENCY : 3 TIMES A DAY;?
     Route: 048
     Dates: start: 20180130
  2. ESBRIET [Suspect]
     Active Substance: PIRFENIDONE
     Dosage: FREQUENCY : 3 TIMES A DAY;?
     Route: 048
  3. ASPIRIN LOW [Concomitant]
  4. CALCIUM [Concomitant]
     Active Substance: CALCIUM
  5. FENOFIBRIC ACID [Concomitant]
     Active Substance: FENOFIBRIC ACID
  6. FISH OIL [Concomitant]
     Active Substance: FISH OIL
  7. LOSARTAN POTASSIUM [Concomitant]
     Active Substance: LOSARTAN POTASSIUM
  8. MAGNESIUM [Concomitant]
     Active Substance: MAGNESIUM
  9. OMEPRAZOLE [Concomitant]
     Active Substance: OMEPRAZOLE
  10. PROBIOTICS NOS [Concomitant]
     Active Substance: PROBIOTICS NOS
  11. PROLIA [Concomitant]
     Active Substance: DENOSUMAB
  12. BIOTIN\CALCIUM PANTOTHENATE\CHOLINE BITARTRATE\CYANOCOBALAMIN\FOLIC AC [Concomitant]
     Active Substance: BIOTIN\CALCIUM PANTOTHENATE\CHOLINE BITARTRATE\CYANOCOBALAMIN\FOLIC ACID\INOSITOL\NIACINAMIDE\PYRIDO
  13. VITAMIN D3 [Concomitant]
     Active Substance: CHOLECALCIFEROL

REACTIONS (2)
  - Hospitalisation [None]
  - Therapy interrupted [None]

NARRATIVE: CASE EVENT DATE: 20211001
